FAERS Safety Report 25864938 (Version 1)
Quarter: 2025Q3

REPORT INFORMATION
  Report Type: Spontaneous
  Country: US (occurrence: US)
  Receive Date: 20250930
  Receipt Date: 20250930
  Transmission Date: 20251021
  Serious: Yes (Death)
  Sender: NOVARTIS
  Company Number: US-002147023-NVSC2025US151031

PATIENT
  Age: 79 Year
  Sex: Male

DRUGS (2)
  1. MEKINIST [Suspect]
     Active Substance: TRAMETINIB DIMETHYL SULFOXIDE
     Indication: Metastases to lung
     Dosage: 2 MG, QD
     Route: 048
     Dates: start: 202209
  2. TAFINLAR [Suspect]
     Active Substance: DABRAFENIB MESYLATE
     Indication: Metastases to lung
     Dosage: 150 MG, Q12H
     Route: 048
     Dates: start: 202209

REACTIONS (1)
  - Death [Fatal]

NARRATIVE: CASE EVENT DATE: 20250914
